FAERS Safety Report 6208976-7 (Version None)
Quarter: 2009Q2

REPORT INFORMATION
  Report Type: 
  Country: None (occurrence: None)
  Receive Date: 20090522
  Receipt Date: 20090206
  Transmission Date: 20091009
  Serious: No
  Sender: FDA-Public Use
  Company Number: 8042635

PATIENT
  Age: 65 Year
  Sex: Female
  Weight: 50.8 kg

DRUGS (7)
  1. CIMZIA [Suspect]
     Indication: CROHN'S DISEASE
     Dosage: 400 MG SC
     Route: 058
     Dates: start: 20080729
  2. LEVOTHYROXINE SODIUM [Concomitant]
  3. CARVEDILOL [Concomitant]
  4. DIPHENOXYLATE HCL + ATROPINE SULFATE [Concomitant]
  5. CAPTOPRIL [Concomitant]
  6. IRON [Concomitant]
  7. VITAMIN B-12 [Concomitant]

REACTIONS (2)
  - ARTHRALGIA [None]
  - JOINT SWELLING [None]
